FAERS Safety Report 22396013 (Version 1)
Quarter: 2023Q2

REPORT INFORMATION
  Report Type: Spontaneous
  Country: US (occurrence: US)
  Receive Date: 20230601
  Receipt Date: 20230601
  Transmission Date: 20230722
  Serious: No
  Sender: FDA-Public Use
  Company Number: US-APIL-2310666US

PATIENT
  Age: 63 Year
  Sex: Male

DRUGS (2)
  1. QULIPTA [Suspect]
     Active Substance: ATOGEPANT
     Indication: Product used for unknown indication
  2. RINVOQ [Suspect]
     Active Substance: UPADACITINIB
     Indication: Product used for unknown indication

REACTIONS (2)
  - Cardiac flutter [Unknown]
  - Arthralgia [Unknown]

NARRATIVE: CASE EVENT DATE: 20221204
